FAERS Safety Report 22310625 (Version 2)
Quarter: 2023Q2

REPORT INFORMATION
  Report Type: Spontaneous
  Country: US (occurrence: US)
  Receive Date: 20230511
  Receipt Date: 20230519
  Transmission Date: 20230722
  Serious: No
  Sender: FDA-Public Use
  Company Number: US-SANOFI-01605463

PATIENT
  Age: 56 Year
  Sex: Female

DRUGS (2)
  1. DUPIXENT [Suspect]
     Active Substance: DUPILUMAB
     Indication: Pemphigoid
     Dosage: 300 MG, QOW
     Route: 043
     Dates: start: 20230410
  2. DUPIXENT [Suspect]
     Active Substance: DUPILUMAB
     Indication: Rash vesicular

REACTIONS (5)
  - Injection site indentation [Unknown]
  - Wrong technique in device usage process [Unknown]
  - Product preparation error [Unknown]
  - Product use in unapproved indication [Unknown]
  - Incorrect route of product administration [Unknown]

NARRATIVE: CASE EVENT DATE: 20230508
